FAERS Safety Report 7525930-3 (Version None)
Quarter: 2011Q2

REPORT INFORMATION
  Report Type: 
  Country: None (occurrence: None)
  Receive Date: 20110606
  Receipt Date: 20110530
  Transmission Date: 20111010
  Serious: Yes (Hospitalization)
  Sender: FDA-Public Use
  Company Number: JP-GENZYME-POMP-1001521

PATIENT
  Sex: Male
  Weight: 8 kg

DRUGS (9)
  1. ALBUTEROL [Concomitant]
     Indication: GLYCOGEN STORAGE DISEASE TYPE II
     Dosage: .1 ML, UNK
     Dates: start: 20091003
  2. HYDROCORTISONE SODIUM PHOSPHATE [Concomitant]
     Indication: PREMEDICATION
     Dosage: 60 MG, Q2W
     Dates: start: 20091029
  3. PRANLUKAST [Concomitant]
     Indication: WHEEZING
     Dosage: 30 MG, BID
     Dates: start: 20100310
  4. BROMHEXINE HYDROCHLORIDE [Concomitant]
     Indication: GLYCOGEN STORAGE DISEASE TYPE II
     Dosage: 1 ML, UNK
     Dates: start: 20091003
  5. MYOZYME [Suspect]
     Indication: GLYCOGEN STORAGE DISEASE TYPE II
     Dosage: 25 MG/KG, UNK
     Route: 042
     Dates: start: 20091015
  6. FERRIC PYROPHOSPHATE [Concomitant]
     Indication: ANAEMIA
     Dosage: 0.67 ML, TID
     Dates: start: 20101210
  7. BIFIDOBACTERIUM BIFIDUM [Concomitant]
     Indication: DIARRHOEA
     Dosage: .33 G, TID
     Dates: start: 20101109
  8. MYOZYME [Suspect]
     Dosage: 150 MG, UNK
     Route: 042
     Dates: start: 20090807, end: 20091002
  9. HYDROXYZINE [Concomitant]
     Indication: PREMEDICATION
     Dosage: 5 MG, Q2W
     Dates: start: 20091029

REACTIONS (1)
  - ANAPHYLACTOID REACTION [None]
